FAERS Safety Report 15857336 (Version 2)
Quarter: 2019Q2

REPORT INFORMATION
  Report Type: Spontaneous
  Country: US (occurrence: US)
  Receive Date: 20190123
  Receipt Date: 20190426
  Transmission Date: 20190711
  Serious: No
  Sender: FDA-Public Use
  Company Number: US-MYLANLABS-2019M1000280

PATIENT
  Sex: Male
  Weight: 122 kg

DRUGS (2)
  1. FENTANYL TRANSDERMAL SYSTEM [Suspect]
     Active Substance: FENTANYL
     Indication: DIABETIC NEUROPATHY
     Dosage: UNK
     Route: 062
  2. OXYCODONE                          /00045603/ [Concomitant]
     Active Substance: OXYCODONE
     Indication: BREAKTHROUGH PAIN
     Dosage: 1-3 TABS EVERY 6 HOURS, PRN/ 15MG THREE TIME A DAY IF NEEDED

REACTIONS (2)
  - Product adhesion issue [Unknown]
  - Therapeutic product effect decreased [Unknown]
